FAERS Safety Report 25431942 (Version 1)
Quarter: 2025Q2

REPORT INFORMATION
  Report Type: Spontaneous
  Country: GB (occurrence: GB)
  Receive Date: 20250613
  Receipt Date: 20250613
  Transmission Date: 20250716
  Serious: Yes (Other)
  Sender: ACCORD
  Company Number: None

PATIENT
  Age: 79 Year
  Sex: Male

DRUGS (1)
  1. LEVETIRACETAM [Suspect]
     Active Substance: LEVETIRACETAM
     Indication: Constipation

REACTIONS (7)
  - Rash papular [Unknown]
  - Alopecia [Unknown]
  - Depression [Unknown]
  - Anger [Unknown]
  - Contusion [Unknown]
  - Rash pruritic [Unknown]
  - Skin exfoliation [Unknown]
